FAERS Safety Report 4768524-5 (Version None)
Quarter: 2005Q3

REPORT INFORMATION
  Report Type: 
  Country: None (occurrence: None)
  Receive Date: 20050914
  Receipt Date: 20050906
  Transmission Date: 20060218
  Serious: Yes (Other)
  Sender: FDA-Public Use
  Company Number: PHBS2005IT13199

PATIENT
  Age: 72 Year
  Sex: Male

DRUGS (5)
  1. THALIDOMIDE [Concomitant]
     Dosage: 100 MG/D
     Route: 048
     Dates: start: 20041201, end: 20050905
  2. ENAPREN [Concomitant]
     Dosage: 20 MG/D
     Route: 048
     Dates: start: 20020101, end: 20050905
  3. CATAPRESSAN TTS [Concomitant]
     Dosage: 5 MG/D
     Route: 062
     Dates: start: 20020101, end: 20050905
  4. CORTISONE ACETATE TAB [Concomitant]
     Route: 065
     Dates: end: 20050501
  5. ZOMETA [Suspect]
     Indication: OSTEOLYSIS
     Dosage: 4 MG, QMO
     Route: 042
     Dates: start: 20030301, end: 20050601

REACTIONS (6)
  - ASEPTIC NECROSIS BONE [None]
  - BONE DEBRIDEMENT [None]
  - LOCAL SWELLING [None]
  - OSTEITIS [None]
  - PAIN IN JAW [None]
  - TOOTH EXTRACTION [None]
